FAERS Safety Report 7799620-6 (Version None)
Quarter: 2011Q4

REPORT INFORMATION
  Report Type: 
  Country: None (occurrence: None)
  Receive Date: 20111006
  Receipt Date: 20110928
  Transmission Date: 20120403
  Serious: Yes (Hospitalization)
  Sender: FDA-Public Use
  Company Number: US-BAYER-2011-022537

PATIENT
  Age: 43 Year
  Sex: Female
  Weight: 79 kg

DRUGS (6)
  1. YAZ [Suspect]
     Indication: MENORRHAGIA
  2. FLUTICASONE PROPIONATE [Concomitant]
     Indication: ASTHMA
     Dosage: UNK
     Dates: start: 20090220, end: 20100501
  3. THYROID TAB [Concomitant]
     Indication: HYPOTHYROIDISM
     Dosage: UNK
     Dates: start: 20090330, end: 20090801
  4. YAZ [Suspect]
     Indication: CONTRACEPTION
     Dosage: UNK
     Route: 048
     Dates: start: 20090201, end: 20090405
  5. PROZAC [Concomitant]
     Indication: DEPRESSION
     Dosage: UNK
     Dates: start: 20080516, end: 20100801
  6. SYNTHROID [Concomitant]
     Dosage: 500 MCG/24HR, QD

REACTIONS (18)
  - DYSPNOEA EXERTIONAL [None]
  - PULMONARY EMBOLISM [None]
  - PAIN [None]
  - EMOTIONAL DISTRESS [None]
  - COUGH [None]
  - SELF ESTEEM DECREASED [None]
  - PSYCHIATRIC SYMPTOM [None]
  - BACK PAIN [None]
  - DEEP VEIN THROMBOSIS [None]
  - INJURY [None]
  - FEAR [None]
  - ANXIETY [None]
  - WEIGHT INCREASED [None]
  - MUSCULOSKELETAL PAIN [None]
  - FEAR OF DISEASE [None]
  - HAEMOPTYSIS [None]
  - CHEST DISCOMFORT [None]
  - CHEST PAIN [None]
